FAERS Safety Report 6121418-5 (Version None)
Quarter: 2009Q1

REPORT INFORMATION
  Report Type: 
  Country: None (occurrence: None)
  Receive Date: 20090313
  Receipt Date: 20090313
  Transmission Date: 20090719
  Serious: Yes (Other)
  Sender: FDA-Public Use
  Company Number: None

PATIENT
  Sex: Female
  Weight: 68.64 kg

DRUGS (5)
  1. FLONASE [Suspect]
     Dosage: 1-2 SPRAY QD RESPIRATORY (INHALATION)
     Route: 055
     Dates: start: 20070103, end: 20090312
  2. FLUOXETINE HCL [Concomitant]
  3. LORAZEPAM [Concomitant]
  4. PRILOSEC OTC (OMEPRAZOLE OTC) [Concomitant]
  5. TAMOXIFEN CITRATE [Concomitant]

REACTIONS (1)
  - CATARACT [None]
